FAERS Safety Report 4438441-9 (Version None)
Quarter: 2004Q3

REPORT INFORMATION
  Report Type: 
  Country: None (occurrence: None)
  Receive Date: 20040831
  Receipt Date: 20040526
  Transmission Date: 20050211
  Serious: Yes (Death, Other)
  Sender: FDA-Public Use
  Company Number: PHEH2004US05930

PATIENT
  Age: 93 Year
  Sex: Female

DRUGS (7)
  1. ZOMETA [Suspect]
     Indication: BREAST CANCER METASTATIC
     Dosage: 4 MG, QMO
     Route: 042
     Dates: start: 20011129, end: 20040310
  2. ADALAT [Concomitant]
     Indication: HYPERTENSION
     Dosage: 30 MG, QD
     Dates: start: 19950101
  3. CALCIUM C [Concomitant]
     Indication: OSTEOPOROSIS
     Dates: start: 20010701
  4. FEMARA [Concomitant]
     Indication: BREAST CANCER
     Dosage: 2.5 MG, UNK
     Dates: start: 20010816, end: 20031223
  5. AROMASIN [Concomitant]
     Indication: BREAST CANCER
     Dosage: 25 MG, UNK
     Dates: start: 20031123, end: 20040323
  6. TAMOXIFEN CITRATE [Concomitant]
     Indication: BREAST CANCER
     Dosage: 20 MG, QD
     Dates: start: 19940101, end: 19990101
  7. LIDOCAINE [Concomitant]

REACTIONS (7)
  - ABSCESS [None]
  - ABSCESS DRAINAGE [None]
  - DEATH [None]
  - LYMPHADENOPATHY [None]
  - MASS [None]
  - NODULE [None]
  - OSTEONECROSIS [None]
